FAERS Safety Report 6504248-1 (Version None)
Quarter: 2009Q4

REPORT INFORMATION
  Report Type: 
  Country: None (occurrence: None)
  Receive Date: 20091217
  Receipt Date: 20091119
  Transmission Date: 20100525
  Serious: No
  Sender: FDA-Public Use
  Company Number: US-ABBOTT-09P-163-0610106-00

PATIENT
  Sex: Male
  Weight: 99.88 kg

DRUGS (1)
  1. HYTRIN [Suspect]
     Indication: HYPERTENSION
     Route: 048
     Dates: start: 20031027, end: 20031101

REACTIONS (2)
  - BLOOD PRESSURE INCREASED [None]
  - OEDEMA [None]
